FAERS Safety Report 9671311 (Version 1)
Quarter: 2013Q4

REPORT INFORMATION
  Report Type: Spontaneous
  Country: GB (occurrence: GB)
  Receive Date: 20131106
  Receipt Date: 20131106
  Transmission Date: 20140711
  Serious: Yes (Hospitalization, Other)
  Sender: FDA-Public Use
  Company Number: PHHY2013GB122554

PATIENT
  Age: 58 Year
  Sex: Male

DRUGS (13)
  1. TRAMADOL [Suspect]
     Indication: ANALGESIC THERAPY
     Dosage: 50 MG, TID
     Route: 048
     Dates: start: 20130805, end: 20130827
  2. PEGASYS [Suspect]
     Indication: ANTIVIRAL TREATMENT
     Dosage: 200 MG, QD
     Route: 048
     Dates: start: 20130419, end: 20130827
  3. PEGASYS [Suspect]
     Indication: HEPATITIS C
     Dosage: 180 UG, QW
     Route: 058
     Dates: start: 20130503, end: 20130823
  4. COPEGUS [Suspect]
     Indication: HEPATITIS C
     Dosage: 1200 MG, QD
     Route: 048
     Dates: start: 20130503, end: 20130605
  5. COPEGUS [Suspect]
     Dosage: 1000 MG, QD
     Route: 048
     Dates: start: 20130605, end: 20130610
  6. COPEGUS [Suspect]
     Dosage: 800 MG, QD
     Route: 048
     Dates: start: 20130610, end: 20130617
  7. COPEGUS [Suspect]
     Dosage: 400 MG, QD
     Route: 048
     Dates: start: 20130617, end: 20130625
  8. COPEGUS [Suspect]
     Dosage: 400 MG, QD
     Route: 048
     Dates: start: 20130719, end: 20130830
  9. INCIVO [Suspect]
     Indication: HEPATITIS C
     Dosage: 2250 MG, QD
     Route: 048
     Dates: start: 20130531, end: 20130805
  10. FLUOXETINE [Concomitant]
     Indication: DEPRESSION
     Dosage: 20 MG, BID
     Route: 048
     Dates: start: 20130417
  11. FUROSEMIDE [Concomitant]
     Indication: ASCITES
     Dosage: 40 MG, BID
     Route: 048
     Dates: start: 20120102
  12. PROPRANOLOL [Concomitant]
     Indication: ANALGESIC THERAPY
     Dosage: 80 MG, QD
     Route: 048
     Dates: start: 20120102
  13. PARACETAMOL [Concomitant]
     Indication: ANALGESIC THERAPY
     Dosage: 500 MG, UNK
     Route: 048

REACTIONS (7)
  - Anaemia [Unknown]
  - Oedema peripheral [Unknown]
  - Memory impairment [Unknown]
  - Malnutrition [Unknown]
  - Thrombocytopenia [Unknown]
  - Hallucination [Not Recovered/Not Resolved]
  - Nausea [Unknown]
